FAERS Safety Report 9425571 (Version 1)
Quarter: 2013Q3

REPORT INFORMATION
  Report Type: Spontaneous
  Country: US (occurrence: US)
  Receive Date: 20130729
  Receipt Date: 20130729
  Transmission Date: 20140515
  Serious: No
  Sender: FDA-Public Use
  Company Number: US-MYLANLABS-2013S1000560

PATIENT
  Age: 70 Year
  Sex: Female
  Weight: 72.12 kg

DRUGS (15)
  1. LEVOTHYROXINE SODIUM TABLETS, USP [Suspect]
     Indication: THYROID HORMONE REPLACEMENT THERAPY
     Route: 048
     Dates: start: 20120522, end: 20121122
  2. LEVOTHYROXINE SODIUM TABLETS, USP [Suspect]
     Indication: HYPOTHYROIDISM
     Route: 048
     Dates: start: 20120522, end: 20121122
  3. LEVOTHYROXINE SODIUM TABLETS, USP [Suspect]
     Indication: THYROID HORMONE REPLACEMENT THERAPY
     Route: 048
     Dates: start: 20121123, end: 20130204
  4. LEVOTHYROXINE SODIUM TABLETS, USP [Suspect]
     Indication: HYPOTHYROIDISM
     Route: 048
     Dates: start: 20121123, end: 20130204
  5. BENICAR [Concomitant]
     Indication: BLOOD PRESSURE INCREASED
     Dates: start: 200411
  6. SYMBICORT [Concomitant]
     Indication: ASTHMA
     Dosage: 160-4.5UG
     Dates: start: 200804
  7. VITAMIN [Concomitant]
     Route: 048
  8. CALCIUM [Concomitant]
     Route: 048
  9. MAGNESIUM [Concomitant]
     Route: 048
  10. FLAXSEED [Concomitant]
     Route: 048
  11. ALBUTEROL INHALER [Concomitant]
  12. CALCIUM PLUS VITAMIN D [Concomitant]
     Route: 048
  13. FOLIC ACID [Concomitant]
  14. MELATONIN [Concomitant]
  15. BENADRYL [Concomitant]
     Route: 048

REACTIONS (6)
  - Alopecia [Not Recovered/Not Resolved]
  - Change of bowel habit [Not Recovered/Not Resolved]
  - Diarrhoea [Not Recovered/Not Resolved]
  - Flatulence [Not Recovered/Not Resolved]
  - Irritable bowel syndrome [Not Recovered/Not Resolved]
  - Constipation [Not Recovered/Not Resolved]
